FAERS Safety Report 24942907 (Version 1)
Quarter: 2025Q1

REPORT INFORMATION
  Report Type: Spontaneous
  Country: IL (occurrence: IL)
  Receive Date: 20250207
  Receipt Date: 20250207
  Transmission Date: 20250408
  Serious: Yes (Hospitalization)
  Sender: PFIZER
  Company Number: IL-PFIZER INC-PV202500013747

PATIENT
  Age: 74 Year
  Sex: Male

DRUGS (1)
  1. LORLATINIB [Suspect]
     Active Substance: LORLATINIB

REACTIONS (8)
  - Headache [Unknown]
  - Visual impairment [Unknown]
  - Condition aggravated [Unknown]
  - Hallucination [Unknown]
  - Aggression [Not Recovered/Not Resolved]
  - Speech disorder [Unknown]
  - Pituitary tumour benign [Unknown]
  - Transsphenoidal surgery [Unknown]
